FAERS Safety Report 4877069-3 (Version None)
Quarter: 2006Q1

REPORT INFORMATION
  Report Type: 
  Country: None (occurrence: None)
  Receive Date: 20060110
  Receipt Date: 20060109
  Transmission Date: 20060701
  Serious: Yes (Life-Threatening)
  Sender: FDA-Public Use
  Company Number: DE-MERCK-0601DEU00021

PATIENT
  Sex: Male

DRUGS (2)
  1. FOSAMAX [Suspect]
     Indication: OSTEOPOROSIS
     Route: 048
  2. ASPIRIN [Suspect]
     Indication: ARTERIOSCLEROSIS
     Route: 048

REACTIONS (4)
  - ANAEMIA [None]
  - CIRCULATORY COLLAPSE [None]
  - DUODENITIS [None]
  - GASTRIC ULCER [None]
